FAERS Safety Report 4715154-7 (Version None)
Quarter: 2005Q3

REPORT INFORMATION
  Report Type: 
  Country: None (occurrence: None)
  Receive Date: 20050715
  Receipt Date: 20050704
  Transmission Date: 20060218
  Serious: Yes (Hospitalization)
  Sender: FDA-Public Use
  Company Number: FR-GLAXOSMITHKLINE-B0386871A

PATIENT
  Age: 58 Year
  Sex: Female

DRUGS (4)
  1. REQUIP [Suspect]
     Indication: PARKINSON'S DISEASE
     Dosage: 2.25MG PER DAY
     Route: 048
     Dates: start: 20050511, end: 20050610
  2. TRIVASTAL [Concomitant]
     Indication: PARKINSON'S DISEASE
     Dosage: 150MG PER DAY
     Route: 048
     Dates: end: 20050611
  3. MODOPAR [Concomitant]
     Indication: PARKINSON'S DISEASE
     Route: 048
  4. DETENSIEL [Concomitant]
     Route: 048

REACTIONS (6)
  - CONFUSIONAL STATE [None]
  - DISORIENTATION [None]
  - DISTURBANCE IN ATTENTION [None]
  - ENCEPHALOPATHY [None]
  - EPILEPSY [None]
  - HALLUCINATIONS, MIXED [None]
